FAERS Safety Report 4286625-5 (Version None)
Quarter: 2004Q1

REPORT INFORMATION
  Report Type: 
  Country: None (occurrence: None)
  Receive Date: 20040206
  Receipt Date: 20040127
  Transmission Date: 20041129
  Serious: Yes (Hospitalization)
  Sender: FDA-Public Use
  Company Number: PHRM2004FR00680

PATIENT
  Age: 80 Year
  Sex: Female

DRUGS (4)
  1. TAREG [Suspect]
     Dosage: 2 DF, DAILY
     Route: 048
     Dates: start: 20021201, end: 20031128
  2. ATARAX [Suspect]
     Route: 048
     Dates: start: 20021201, end: 20031128
  3. ZANIDIP [Suspect]
     Dosage: 1 DF, DAILY
     Route: 048
     Dates: start: 20021201, end: 20031128
  4. ELISOR [Suspect]
     Dosage: 1 DF, DAILY
     Route: 048
     Dates: start: 20021201, end: 20031128

REACTIONS (2)
  - ECZEMA [None]
  - PRURITUS [None]
